FAERS Safety Report 5823319-6 (Version None)
Quarter: 2008Q3

REPORT INFORMATION
  Report Type: 
  Country: None (occurrence: None)
  Receive Date: 20080725
  Receipt Date: 20070621
  Transmission Date: 20090109
  Serious: No
  Sender: FDA-Public Use
  Company Number: US-AMGEN-KDL230975

PATIENT
  Sex: Female

DRUGS (7)
  1. PROCRIT [Suspect]
     Indication: RENAL FAILURE CHRONIC
     Route: 058
     Dates: start: 20070222, end: 20070315
  2. ASPIRIN [Concomitant]
  3. ATENOLOL [Concomitant]
  4. LOVASTATIN [Concomitant]
  5. HYDRALAZINE HCL [Concomitant]
  6. FUROSEMIDE [Concomitant]
  7. UNSPECIFIED ANTIDIABETIC AGENT [Concomitant]

REACTIONS (3)
  - INJECTION SITE DISCOMFORT [None]
  - INJECTION SITE PAIN [None]
  - INJECTION SITE SWELLING [None]
